FAERS Safety Report 8928681 (Version 1)
Quarter: 2012Q4

REPORT INFORMATION
  Report Type: Spontaneous
  Country: US (occurrence: None)
  Receive Date: 20121126
  Receipt Date: 20121126
  Transmission Date: 20130627
  Serious: Yes (Life-Threatening, Other)
  Sender: FDA-Public Use
  Company Number: None

PATIENT
  Age: 32 Year
  Sex: Female
  Weight: 97.52 kg

DRUGS (1)
  1. CYMBALTA [Suspect]
     Indication: NERVE PAIN
     Dosage: 60 MG   once a day   po
     Route: 048
     Dates: start: 20090801, end: 20121030

REACTIONS (2)
  - Withdrawal syndrome [None]
  - Drug dependence [None]
